FAERS Safety Report 8777273 (Version 1)
Quarter: 2012Q4

REPORT INFORMATION
  Report Type: 
  Country: US (occurrence: US)
  Receive Date: 20120910
  Receipt Date: 20120910
  Transmission Date: 20130627
  Serious: Yes (Other)
  Sender: FDA-Public Use
  Company Number: US-ASTRAZENECA-2012SE69164

PATIENT
  Sex: Female

DRUGS (2)
  1. SYMBICORT PMDI [Suspect]
     Dosage: 80/4.5 MCG OF UNKNOWN FREQUENCY
     Route: 055
     Dates: start: 201202
  2. SEROQUEL [Suspect]
     Route: 048

REACTIONS (2)
  - Urinary tract infection [Unknown]
  - Mental disorder [Unknown]
